FAERS Safety Report 21109733 (Version 5)
Quarter: 2023Q1

REPORT INFORMATION
  Report Type: Spontaneous
  Country: ES (occurrence: ES)
  Receive Date: 20220721
  Receipt Date: 20230218
  Transmission Date: 20230417
  Serious: Yes (Life-Threatening, Hospitalization, Other)
  Sender: FDA-Public Use
  Company Number: ES-Orion Corporation ORION PHARMA-DEX 2022-0076

PATIENT
  Age: 77 Year
  Sex: Male

DRUGS (28)
  1. OLANZAPINE [Suspect]
     Active Substance: OLANZAPINE
     Indication: Confusional state
     Dosage: UNK
     Route: 065
  2. QUETIAPINE [Suspect]
     Active Substance: QUETIAPINE
     Indication: Confusional state
     Dosage: UNK
     Route: 065
  3. CLONIDINE [Suspect]
     Active Substance: CLONIDINE
     Indication: Confusional state
     Dosage: UNK
     Route: 065
  4. DEXMEDETOMIDINE [Suspect]
     Active Substance: DEXMEDETOMIDINE
     Indication: Confusional state
     Dosage: UNK
     Route: 065
  5. HALOPERIDOL [Suspect]
     Active Substance: HALOPERIDOL
     Indication: Confusional state
     Dosage: UNK
     Route: 065
  6. MORPHINE [Suspect]
     Active Substance: MORPHINE
     Indication: Analgesic therapy
     Dosage: UNK
     Route: 065
  7. MORPHINE [Suspect]
     Active Substance: MORPHINE
     Indication: Post laminectomy syndrome
     Dosage: 150 MILLIGRAM, 3 TIMES A DAY
     Route: 048
  8. MORPHINE [Suspect]
     Active Substance: MORPHINE
     Dosage: 25% OF THE EQUIVALENT DOSE OF INTRATHECAL MORPHINE
     Route: 042
  9. MORPHINE [Suspect]
     Active Substance: MORPHINE
     Dosage: 4.9 MILLIGRAM, ONCE A DAY
     Route: 037
  10. MORPHINE [Suspect]
     Active Substance: MORPHINE
     Dosage: UNK, DESCENDING ORAL
     Route: 065
  11. MORPHINE [Suspect]
     Active Substance: MORPHINE
     Dosage: 7997 MILLIGRAM, ONCE A DAY
     Route: 037
  12. MORPHINE [Suspect]
     Active Substance: MORPHINE
     Dosage: INTRATHECAL PUMP
     Route: 065
  13. MORPHINE [Suspect]
     Active Substance: MORPHINE
     Dosage: PATIENT-CONTROLLED ANALGESIA PUMP
     Route: 065
  14. CEFTAZIDIME [Suspect]
     Active Substance: CEFTAZIDIME
     Indication: Device related infection
     Dosage: UNK
     Route: 065
  15. CEFTAZIDIME [Suspect]
     Active Substance: CEFTAZIDIME
     Indication: Antibiotic therapy
  16. CLOXACILLIN [Suspect]
     Active Substance: CLOXACILLIN
     Indication: Device related infection
     Dosage: UNK
     Route: 065
  17. CLOXACILLIN [Suspect]
     Active Substance: CLOXACILLIN
     Indication: Antibiotic therapy
  18. CLOXACILLIN [Suspect]
     Active Substance: CLOXACILLIN
     Indication: Postoperative wound infection
  19. CEFTAZIDIME [Concomitant]
     Active Substance: CEFTAZIDIME
     Indication: Postoperative wound infection
     Dosage: UNK
     Route: 065
  20. MORPHINE [Concomitant]
     Active Substance: MORPHINE
     Indication: Pain
     Dosage: PATIENT-CONTROLLED ANALGESIA PUMP
     Route: 065
  21. MORPHINE [Concomitant]
     Active Substance: MORPHINE
     Indication: Post laminectomy syndrome
     Dosage: ORAL CONTROLLED-RELEASE MORPHINE (MST) WAS STARTED PROGRESSIVELY UNTIL 50%
     Route: 065
  22. MORPHINE [Concomitant]
     Active Substance: MORPHINE
     Dosage: DESCENDING ORAL MORPHINE REGIMEN
     Route: 065
  23. MORPHINE [Concomitant]
     Active Substance: MORPHINE
     Dosage: MST STARTED IN ASCENDING DOSES, DOSE INCREASED
     Route: 065
  24. MORPHINE [Concomitant]
     Active Substance: MORPHINE
     Dosage: INCREASED TO 50 PERCENT OF THE DOSE OF MI, PATIENT CONTROLLED ANALGESIA PUMP
     Route: 065
  25. MORPHINE [Concomitant]
     Active Substance: MORPHINE
     Dosage: 120 MILLIGRAM, 3 TIMES A DAY
     Route: 065
  26. MORPHINE [Concomitant]
     Active Substance: MORPHINE
     Dosage: 200 MILLIGRAM, 3 TIMES A DAY
     Route: 065
  27. MORPHINE [Concomitant]
     Active Substance: MORPHINE
     Dosage: 8 MILLIGRAM (7.997 MILLIGRAM PER DAY THROUGH INTRATHECAL MORPHINE (MI) PUMP CARRIER)
     Route: 065
  28. MORPHINE [Concomitant]
     Active Substance: MORPHINE
     Dosage: 150 MILLIGRAM, 3 TIMES A DAY
     Route: 065

REACTIONS (12)
  - Haemodynamic instability [Recovered/Resolved]
  - Respiratory failure [Recovering/Resolving]
  - Toxicity to various agents [Recovering/Resolving]
  - Condition aggravated [Recovered/Resolved]
  - Delirium [Recovering/Resolving]
  - Confusional state [Recovering/Resolving]
  - Somnolence [Recovering/Resolving]
  - Drug withdrawal syndrome [Recovering/Resolving]
  - Drug ineffective [Recovered/Resolved]
  - Drug ineffective for unapproved indication [Unknown]
  - Product use in unapproved indication [Unknown]
  - Hypersomnia [Recovered/Resolved]
